FAERS Safety Report 15229520 (Version 1)
Quarter: 2018Q3

REPORT INFORMATION
  Report Type: Spontaneous
  Country: US (occurrence: US)
  Receive Date: 20180802
  Receipt Date: 20180802
  Transmission Date: 20181010
  Serious: Yes (Hospitalization, Other)
  Sender: FDA-Public Use
  Company Number: US-STRIDES ARCOLAB LIMITED-2018SP005006

PATIENT

DRUGS (2)
  1. TENOFOVIR DISOPROXIL FUMARATE. [Suspect]
     Active Substance: TENOFOVIR DISOPROXIL FUMARATE
     Indication: HIV INFECTION
     Dosage: UNK
     Route: 065
  2. LOPINAVIR/RITONAVIR [Suspect]
     Active Substance: LOPINAVIR\RITONAVIR
     Indication: HIV INFECTION
     Dosage: UNK
     Route: 065

REACTIONS (11)
  - Metabolic acidosis [Unknown]
  - Hyperchloraemia [Unknown]
  - Hypokalaemia [Unknown]
  - Pyrexia [Unknown]
  - Fanconi syndrome [Unknown]
  - Delirium [Unknown]
  - Sepsis [Recovered/Resolved]
  - Acute kidney injury [Unknown]
  - Hypotension [Unknown]
  - Renal tubular acidosis [Unknown]
  - Tachypnoea [Unknown]
